FAERS Safety Report 4871488-7 (Version None)
Quarter: 2005Q4

REPORT INFORMATION
  Report Type: 
  Country: None (occurrence: None)
  Receive Date: 20051229
  Receipt Date: 20051031
  Transmission Date: 20060501
  Serious: Yes (Other)
  Sender: FDA-Public Use
  Company Number: 2005-0001

PATIENT
  Sex: Female
  Weight: 68.0396 kg

DRUGS (16)
  1. HYOSCYAMINE SULFATE ELIXIR [Suspect]
     Indication: GASTROOESOPHAGEAL REFLUX DISEASE
     Dosage: TWO TEASPOONS 4 TIMES A DAY
     Dates: start: 20050701
  2. NEXIUM [Concomitant]
  3. BENZONATATE [Concomitant]
  4. ZANTAC [Concomitant]
  5. ZOFRAN [Concomitant]
  6. GABAPENTIN [Concomitant]
  7. CARBAMAZEPINE [Concomitant]
  8. BACLOFEN [Concomitant]
  9. CLONIDINE [Concomitant]
  10. NAMENDA [Concomitant]
  11. CYMBALTA [Concomitant]
  12. METFORMIN [Concomitant]
  13. SINGULAIR [Concomitant]
  14. ALLEGRA [Concomitant]
  15. NICOMID [Concomitant]
  16. DRISDOL [Concomitant]

REACTIONS (13)
  - BLINDNESS UNILATERAL [None]
  - CHOKING [None]
  - CONVULSION [None]
  - COUGH [None]
  - DIFFICULTY IN WALKING [None]
  - DIPLOPIA [None]
  - DRUG INEFFECTIVE [None]
  - DYSPHONIA [None]
  - EYE MOVEMENT DISORDER [None]
  - FEELING DRUNK [None]
  - GASTROOESOPHAGEAL REFLUX DISEASE [None]
  - NERVOUS SYSTEM DISORDER [None]
  - STUPOR [None]
